FAERS Safety Report 7784331-3 (Version None)
Quarter: 2011Q3

REPORT INFORMATION
  Report Type: 
  Country: None (occurrence: None)
  Receive Date: 20110928
  Receipt Date: 20110916
  Transmission Date: 20111222
  Serious: Yes (Other)
  Sender: FDA-Public Use
  Company Number: PHHY2011DE82968

PATIENT
  Age: 46 Year
  Sex: Male

DRUGS (1)
  1. GILENYA [Suspect]
     Indication: MULTIPLE SCLEROSIS
     Dosage: 0.5 MG, PER DAY
     Route: 048
     Dates: start: 20101001

REACTIONS (10)
  - FATIGUE [None]
  - MUSCLE SPASTICITY [None]
  - BACK PAIN [None]
  - PARAESTHESIA [None]
  - PAIN IN EXTREMITY [None]
  - MULTIPLE SCLEROSIS RELAPSE [None]
  - VISUAL IMPAIRMENT [None]
  - APATHY [None]
  - HYPOTHYROIDISM [None]
  - BLOOD PRESSURE DECREASED [None]
